FAERS Safety Report 9720357 (Version 1)
Quarter: 2013Q4

REPORT INFORMATION
  Report Type: Spontaneous
  Country: US (occurrence: US)
  Receive Date: 20131129
  Receipt Date: 20131129
  Transmission Date: 20140711
  Serious: No
  Sender: FDA-Public Use
  Company Number: US-009507513-1311USA011522

PATIENT
  Age: 54 Year
  Sex: Male

DRUGS (1)
  1. LIPTRUZET [Suspect]
     Dosage: UNK
     Route: 048
     Dates: start: 20131113

REACTIONS (3)
  - Influenza like illness [Unknown]
  - Sensation of heaviness [Unknown]
  - Depressed mood [Unknown]
